FAERS Safety Report 4854335-9 (Version None)
Quarter: 2005Q4

REPORT INFORMATION
  Report Type: 
  Country: None (occurrence: None)
  Receive Date: 20051215
  Receipt Date: 20051205
  Transmission Date: 20060501
  Serious: Yes (Other)
  Sender: FDA-Public Use
  Company Number: PHNU2005DE04010

PATIENT
  Age: 80 Year
  Sex: Female

DRUGS (1)
  1. CLOZARIL [Suspect]
     Dosage: 150 MG, ONCE/SINGLE
     Route: 048
     Dates: start: 20051204, end: 20051204

REACTIONS (2)
  - ACCIDENTAL EXPOSURE [None]
  - SEDATION [None]
